FAERS Safety Report 9490058 (Version 2)
Quarter: 2013Q3

REPORT INFORMATION
  Report Type: Spontaneous
  Country: US (occurrence: US)
  Receive Date: 20130829
  Receipt Date: 20130829
  Transmission Date: 20140515
  Serious: Yes (Other)
  Sender: FDA-Public Use
  Company Number: US-RB-057751-13

PATIENT
  Age: 0 None
  Sex: Male

DRUGS (5)
  1. SUBOXONE FILM [Suspect]
     Indication: DRUG DEPENDENCE
     Dosage: SUBOXONE FILM
     Route: 064
     Dates: start: 201112
  2. BUPRENORPHINE GENERIC [Suspect]
     Indication: DRUG DEPENDENCE
     Route: 064
     Dates: end: 201208
  3. SUBUTEX [Suspect]
     Indication: PRODUCT USED FOR UNKNOWN INDICATION
     Dosage: DOSING DETAILS UNKNOWN
     Route: 064
  4. PRENATAL VITAMINS [Suspect]
     Indication: PREGNANCY
     Dosage: UNKNOWN DOSE DAILY
     Route: 064
     Dates: end: 20120819
  5. NICOTINE [Suspect]
     Indication: TOBACCO USER
     Dosage: 20 CIGARETTES DAILY
     Route: 064
     Dates: start: 201112, end: 20120819

REACTIONS (3)
  - Foetal exposure during pregnancy [Recovered/Resolved]
  - Premature baby [Recovered/Resolved]
  - Low birth weight baby [Recovered/Resolved]
